FAERS Safety Report 6697538-3 (Version None)
Quarter: 2010Q2

REPORT INFORMATION
  Report Type: 
  Country: None (occurrence: None)
  Receive Date: 20100421
  Receipt Date: 20090608
  Transmission Date: 20101027
  Serious: Yes (Other)
  Sender: FDA-Public Use
  Company Number: 20090175

PATIENT
  Age: 28 Year
  Sex: Female
  Weight: 70.7611 kg

DRUGS (1)
  1. DEXFERRUM [Suspect]
     Indication: IRON DEFICIENCY ANAEMIA
     Dosage: 0.5CC OF 25 MG TEST INTRAVENOUS
     Route: 042
     Dates: start: 20090507, end: 20090507

REACTIONS (3)
  - BACK PAIN [None]
  - CHEST PAIN [None]
  - HYPOTENSION [None]
